FAERS Safety Report 5032626-9 (Version None)
Quarter: 2006Q2

REPORT INFORMATION
  Report Type: 
  Country: None (occurrence: None)
  Receive Date: 20060620
  Receipt Date: 20060620
  Transmission Date: 20061013
  Serious: Yes (Life-Threatening, Hospitalization)
  Sender: FDA-Public Use
  Company Number: None

PATIENT
  Age: 50 Year
  Sex: Female
  Weight: 81.6475 kg

DRUGS (1)
  1. MORPHINE [Suspect]
     Indication: PAIN
     Dosage: NOT SURE    3 TIMES A DAY   PO
     Route: 048
     Dates: start: 20060613, end: 20060616

REACTIONS (2)
  - CONTRAINDICATION TO MEDICAL TREATMENT [None]
  - MEDICATION ERROR [None]
